FAERS Safety Report 7014728-0 (Version None)
Quarter: 2010Q3

REPORT INFORMATION
  Report Type: 
  Country: None (occurrence: None)
  Receive Date: 20100927
  Receipt Date: 20100916
  Transmission Date: 20110219
  Serious: Yes (Other)
  Sender: FDA-Public Use
  Company Number: PHHY2010BR61914

PATIENT
  Age: 56 Year
  Sex: Female

DRUGS (1)
  1. FORASEQ [Suspect]
     Indication: LUNG DISORDER
     Dosage: 12/400 MCG, EVERY 12 HOURS

REACTIONS (2)
  - GLAUCOMA [None]
  - VISUAL IMPAIRMENT [None]
